FAERS Safety Report 10579120 (Version 1)
Quarter: 2014Q4

REPORT INFORMATION
  Report Type: Spontaneous
  Country: GB (occurrence: GB)
  Receive Date: 20141112
  Receipt Date: 20141112
  Transmission Date: 20150529
  Serious: Yes (Hospitalization, Disabling, Other)
  Sender: FDA-Public Use
  Company Number: GB-SA-2014SA152287

PATIENT
  Age: 23 Year
  Sex: Male
  Weight: 78.92 kg

DRUGS (6)
  1. MORPHINE SULFATE. [Suspect]
     Active Substance: MORPHINE SULFATE
     Indication: COSTOCHONDRITIS
     Route: 048
     Dates: start: 20121013
  2. CYCLIZINE [Suspect]
     Active Substance: CYCLIZINE
     Indication: MALAISE
     Route: 048
     Dates: start: 20121013
  3. TRAMADOL HYDROCHLORIDE. [Suspect]
     Active Substance: TRAMADOL HYDROCHLORIDE
     Indication: PAIN
     Route: 048
     Dates: start: 20141022, end: 20141023
  4. NAPROXEN. [Suspect]
     Active Substance: NAPROXEN
     Indication: INFLAMMATORY PAIN
     Route: 048
     Dates: start: 20121013
  5. MORPHINE SULFATE. [Suspect]
     Active Substance: MORPHINE SULFATE
     Indication: COSTOCHONDRITIS
     Route: 048
     Dates: start: 20121013
  6. CLOPIDOGREL BISULFATE. [Suspect]
     Active Substance: CLOPIDOGREL BISULFATE
     Indication: ANGINA PECTORIS
     Route: 051
     Dates: start: 20140928, end: 20140928

REACTIONS (5)
  - Swelling face [Recovered/Resolved]
  - Pruritus [Not Recovered/Not Resolved]
  - Vomiting projectile [Recovered/Resolved with Sequelae]
  - Angina pectoris [Not Recovered/Not Resolved]
  - Hallucination [Not Recovered/Not Resolved]
